FAERS Safety Report 14732168 (Version 3)
Quarter: 2019Q2

REPORT INFORMATION
  Report Type: Spontaneous
  Country: CA (occurrence: CA)
  Receive Date: 20180409
  Receipt Date: 20190514
  Transmission Date: 20190711
  Serious: Yes (Other)
  Sender: FDA-Public Use
  Company Number: CA-009507513-1304CAN007571

PATIENT
  Age: 82 Year
  Sex: Female

DRUGS (1)
  1. EZETROL [Suspect]
     Active Substance: EZETIMIBE
     Indication: DYSLIPIDAEMIA
     Dosage: 10 MILLIGRAM, DAILY (QD)
     Route: 048
     Dates: start: 2012

REACTIONS (10)
  - Blood potassium decreased [Unknown]
  - Renal disorder [Unknown]
  - Protein total decreased [Unknown]
  - Influenza [Recovering/Resolving]
  - Feeling abnormal [Unknown]
  - Blood iron decreased [Unknown]
  - Kidney infection [Recovering/Resolving]
  - Memory impairment [Unknown]
  - Influenza [Recovering/Resolving]
  - Cystitis [Recovering/Resolving]

NARRATIVE: CASE EVENT DATE: 20121116
